FAERS Safety Report 10570539 (Version 2)
Quarter: 2014Q4

REPORT INFORMATION
  Report Type: Spontaneous
  Country: US (occurrence: US)
  Receive Date: 20141107
  Receipt Date: 20141107
  Transmission Date: 20150529
  Serious: No
  Sender: FDA-Public Use
  Company Number: US-TEVA-460008USA

PATIENT
  Age: 54 Year
  Sex: Male
  Weight: 69.46 kg

DRUGS (10)
  1. OXALIPLATIN INJECTION 50MG/10 ML AND 100MG/20ML [Suspect]
     Active Substance: OXALIPLATIN
     Dosage: 50 MG AND 100 MG
     Dates: start: 20131210
  2. OXALIPLATIN INJECTION 50MG/10 ML AND 100MG/20ML [Suspect]
     Active Substance: OXALIPLATIN
     Dosage: 225 MILLIGRAM DAILY;
     Route: 042
     Dates: start: 20131231
  3. IBUPROFEN. [Concomitant]
     Active Substance: IBUPROFEN
  4. XELODA [Concomitant]
     Active Substance: CAPECITABINE
  5. CAPECITABINE. [Concomitant]
     Active Substance: CAPECITABINE
  6. LORAZEPAM. [Concomitant]
     Active Substance: LORAZEPAM
  7. PROCHLORPERAZINE MALEATE. [Concomitant]
     Active Substance: PROCHLORPERAZINE MALEATE
  8. LOPERAMIDE [Concomitant]
     Active Substance: LOPERAMIDE
  9. ONDANSETRON HYDROCHLORIDE. [Concomitant]
     Active Substance: ONDANSETRON HYDROCHLORIDE
  10. DEXAMETHASONE. [Concomitant]
     Active Substance: DEXAMETHASONE

REACTIONS (1)
  - Muscle spasms [Recovered/Resolved]

NARRATIVE: CASE EVENT DATE: 20131231
